FAERS Safety Report 8970467 (Version 1)
Quarter: 2012Q4

REPORT INFORMATION
  Report Type: 
  Country: US (occurrence: US)
  Receive Date: 20121218
  Receipt Date: 20121218
  Transmission Date: 20130627
  Serious: No
  Sender: FDA-Public Use
  Company Number: US-GLAXOSMITHKLINE-A0974740A

PATIENT
  Age: 60 Year
  Sex: Male

DRUGS (2)
  1. NICORETTE [Suspect]
     Indication: EX-TOBACCO USER
     Route: 048
     Dates: start: 201202, end: 201204
  2. NICODERM CQ [Suspect]
     Indication: EX-TOBACCO USER
     Dates: start: 201204

REACTIONS (6)
  - Drug ineffective [Unknown]
  - Application site pain [Recovered/Resolved]
  - Application site swelling [Recovered/Resolved]
  - Application site pruritus [Not Recovered/Not Resolved]
  - Application site dryness [Unknown]
  - Application site rash [Not Recovered/Not Resolved]
